FAERS Safety Report 15219126 (Version 2)
Quarter: 2018Q3

REPORT INFORMATION
  Report Type: Spontaneous
  Country: DE (occurrence: DE)
  Receive Date: 20180731
  Receipt Date: 20180803
  Transmission Date: 20181010
  Serious: Yes (Hospitalization)
  Sender: FDA-Public Use
  Company Number: DE-MERCK KGAA-2052970

PATIENT
  Age: 19 Year
  Sex: Female
  Weight: 50 kg

DRUGS (1)
  1. NOVOTHYROX [Suspect]
     Active Substance: LEVOTHYROXINE SODIUM
     Indication: SUICIDAL IDEATION
     Dates: start: 20180718

REACTIONS (2)
  - Suicidal ideation [Recovering/Resolving]
  - Thyroxine free increased [None]

NARRATIVE: CASE EVENT DATE: 20180718
